FAERS Safety Report 4563708-3 (Version None)
Quarter: 2005Q1

REPORT INFORMATION
  Report Type: 
  Country: None (occurrence: None)
  Receive Date: 20050128
  Receipt Date: 20050124
  Transmission Date: 20050727
  Serious: Yes (Other)
  Sender: FDA-Public Use
  Company Number: PHBS2005FI01307

PATIENT

DRUGS (2)
  1. GLEEVEC [Suspect]
     Indication: BLAST CRISIS IN MYELOGENOUS LEUKAEMIA
     Dosage: 800 MG/DAY
     Route: 048
     Dates: start: 20040901, end: 20041001
  2. GLEEVEC [Suspect]
     Dosage: 400 MG/DAY
     Route: 048
     Dates: start: 20041001, end: 20041101

REACTIONS (3)
  - MYELOFIBROSIS [None]
  - NEUTROPENIA [None]
  - THROMBOCYTOPENIA [None]
